FAERS Safety Report 7371292-4 (Version None)
Quarter: 2011Q1

REPORT INFORMATION
  Report Type: 
  Country: None (occurrence: None)
  Receive Date: 20110324
  Receipt Date: 20110310
  Transmission Date: 20110831
  Serious: Yes (Hospitalization, Other)
  Sender: FDA-Public Use
  Company Number: US-BAYER-2011-021227

PATIENT
  Sex: Female
  Weight: 109 kg

DRUGS (6)
  1. OCELLA [Suspect]
     Indication: MENSTRUATION IRREGULAR
  2. YAZ [Suspect]
     Indication: MENSTRUATION IRREGULAR
  3. YASMIN [Suspect]
     Indication: CONTRACEPTION
     Dosage: UNK
     Dates: start: 20010101, end: 20090101
  4. OCELLA [Suspect]
     Indication: CONTRACEPTION
     Dosage: UNK
     Dates: start: 20090309
  5. YAZ [Suspect]
     Indication: CONTRACEPTION
     Dosage: UNK
     Dates: start: 20010101, end: 20090101
  6. YASMIN [Suspect]
     Indication: MENSTRUATION IRREGULAR

REACTIONS (4)
  - PAIN [None]
  - CHOLELITHIASIS [None]
  - DIARRHOEA [None]
  - ABDOMINAL PAIN UPPER [None]
